FAERS Safety Report 8343559-4 (Version None)
Quarter: 2012Q2

REPORT INFORMATION
  Report Type: 
  Country: None (occurrence: None)
  Receive Date: 20120503
  Receipt Date: 20120503
  Transmission Date: 20120825
  Serious: Yes (Hospitalization)
  Sender: FDA-Public Use
  Company Number: None

PATIENT
  Sex: Female
  Weight: 69.4 kg

DRUGS (2)
  1. TAXOL [Suspect]
     Dosage: 425 MG
     Dates: end: 20111215
  2. TAXOL [Suspect]
     Dosage: 300 MG
     Dates: end: 20111215

REACTIONS (6)
  - PYREXIA [None]
  - CLOSTRIDIUM DIFFICILE COLITIS [None]
  - BLOOD CREATININE INCREASED [None]
  - COLITIS ISCHAEMIC [None]
  - ABDOMINAL PAIN [None]
  - DISEASE PROGRESSION [None]
